FAERS Safety Report 24294682 (Version 1)
Quarter: 2024Q3

REPORT INFORMATION
  Report Type: Spontaneous
  Country: CN (occurrence: CN)
  Receive Date: 20240906
  Receipt Date: 20240906
  Transmission Date: 20241017
  Serious: Yes (Other)
  Sender: MERCK
  Company Number: CN-009507513-2409CHN000863

PATIENT
  Age: 71 Year
  Sex: Female
  Weight: 46.3 kg

DRUGS (1)
  1. INVANZ [Suspect]
     Active Substance: ERTAPENEM SODIUM
     Indication: Sepsis
     Dosage: 1 G, QD
     Route: 041
     Dates: start: 20240813, end: 20240816

REACTIONS (4)
  - Disorganised speech [Recovered/Resolved]
  - Unresponsive to stimuli [Recovered/Resolved]
  - Muscle twitching [Recovered/Resolved]
  - Trismus [Recovered/Resolved]

NARRATIVE: CASE EVENT DATE: 20240816
